FAERS Safety Report 7932845-5 (Version None)
Quarter: 2011Q4

REPORT INFORMATION
  Report Type: 
  Country: None (occurrence: None)
  Receive Date: 20111122
  Receipt Date: 20111117
  Transmission Date: 20120403
  Serious: Yes (Death, Other)
  Sender: FDA-Public Use
  Company Number: GB-PFIZER INC-2011232086

PATIENT
  Age: 11 Day
  Sex: Male
  Weight: 3.67 kg

DRUGS (4)
  1. FUROSEMIDE [Concomitant]
     Indication: CARDIAC FAILURE
     Dosage: 1 MG, 2X/DAY
  2. GENTAMICIN [Concomitant]
     Dosage: 18.4 MG, UNK
  3. FLUCLOXACILLIN [Concomitant]
     Dosage: 92 MG, 2X/DAY
  4. PHENYTOIN [Suspect]
     Indication: CONVULSION
     Dosage: 13 MG, 2X/DAY
     Route: 042
     Dates: start: 20110621, end: 20110702

REACTIONS (4)
  - HYPOXIC-ISCHAEMIC ENCEPHALOPATHY [None]
  - HYPOXIA [None]
  - CARDIAC FAILURE CONGESTIVE [None]
  - ANTICONVULSANT DRUG LEVEL ABOVE THERAPEUTIC [None]
